FAERS Safety Report 4677504-X (Version None)
Quarter: 2005Q2

REPORT INFORMATION
  Report Type: 
  Country: None (occurrence: None)
  Receive Date: 20050531
  Receipt Date: 20050520
  Transmission Date: 20051028
  Serious: Yes (Hospitalization, Other)
  Sender: FDA-Public Use
  Company Number: PHEH2005US05858

PATIENT
  Age: 16 Year
  Sex: Female

DRUGS (1)
  1. PAMIDRONATE DISODIUM [Suspect]
     Indication: FIBROUS DYSPLASIA OF BONE
     Dosage: 60 MG, PRN

REACTIONS (9)
  - ANAEMIA [None]
  - BLOOD PRODUCT TRANSFUSION [None]
  - BONE MARROW DEPRESSION [None]
  - FALL [None]
  - HAEMATOCRIT DECREASED [None]
  - HAEMOGLOBIN DECREASED [None]
  - HUMERUS FRACTURE [None]
  - RETICULOCYTE COUNT DECREASED [None]
  - SYNCOPE [None]
